FAERS Safety Report 6260523-X (Version None)
Quarter: 2009Q3

REPORT INFORMATION
  Report Type: 
  Country: None (occurrence: None)
  Receive Date: 20090708
  Receipt Date: 20090629
  Transmission Date: 20100115
  Serious: Yes (Death)
  Sender: FDA-Public Use
  Company Number: JP-WYE-H09940909

PATIENT
  Sex: Female
  Weight: 48 kg

DRUGS (9)
  1. MYLOTARG [Suspect]
     Indication: ACUTE MYELOID LEUKAEMIA
     Route: 041
     Dates: start: 20070302, end: 20070302
  2. MYLOTARG [Suspect]
     Route: 041
     Dates: start: 20070316, end: 20070316
  3. LIPITOR [Concomitant]
     Route: 048
     Dates: start: 20061222
  4. MEROPEN [Concomitant]
     Route: 041
     Dates: start: 20070314, end: 20070319
  5. ITRIZOLE [Concomitant]
     Indication: PROPHYLAXIS
     Route: 048
     Dates: start: 20061222
  6. MEPTIN [Concomitant]
     Indication: PROPHYLAXIS
     Route: 048
     Dates: start: 20061222
  7. MODACIN [Concomitant]
     Route: 041
     Dates: start: 20070311, end: 20070314
  8. AMLODIPINE [Concomitant]
     Route: 048
     Dates: start: 20061222
  9. MAGNESIUM OXIDE [Concomitant]
     Indication: PROPHYLAXIS
     Route: 048
     Dates: start: 20061222

REACTIONS (3)
  - PNEUMONIA [None]
  - RESPIRATORY FAILURE [None]
  - SHOCK [None]
